FAERS Safety Report 5087882-8 (Version None)
Quarter: 2006Q3

REPORT INFORMATION
  Report Type: 
  Country: None (occurrence: None)
  Receive Date: 20060824
  Receipt Date: 20060818
  Transmission Date: 20061208
  Serious: Yes (Other)
  Sender: FDA-Public Use
  Company Number: US-JNJFOC-20060804417

PATIENT
  Sex: Female
  Weight: 77.11 kg

DRUGS (3)
  1. IMODIUM ADVANCED [Suspect]
     Route: 048
  2. IMODIUM ADVANCED [Suspect]
     Indication: DIARRHOEA
     Dosage: 1-2 CHEWABLE TABLETS, PRN, PO
     Route: 048
  3. DEPAKOTE [Concomitant]
     Indication: BIPOLAR DISORDER

REACTIONS (1)
  - HYPERTENSION [None]
